FAERS Safety Report 25056056 (Version 1)
Quarter: 2025Q1

REPORT INFORMATION
  Report Type: Spontaneous
  Country: US (occurrence: US)
  Receive Date: 20250309
  Receipt Date: 20250309
  Transmission Date: 20250409
  Serious: Yes (Other)
  Sender: AMGEN
  Company Number: US-AMGEN-USASP2025040293

PATIENT
  Age: 42 Year
  Sex: Male

DRUGS (5)
  1. PREDNISONE [Suspect]
     Active Substance: PREDNISONE
     Indication: End stage renal disease
     Dosage: 80 MILLIGRAM, QD
     Route: 065
  2. PREDNISONE [Suspect]
     Active Substance: PREDNISONE
     Indication: Lupus nephritis
  3. HYDROXYCHLOROQUINE [Concomitant]
     Active Substance: HYDROXYCHLOROQUINE
     Route: 065
  4. MYCOPHENOLIC ACID [Concomitant]
     Active Substance: MYCOPHENOLIC ACID
     Route: 065
  5. VALACYCLOVIR [Concomitant]
     Active Substance: VALACYCLOVIR HYDROCHLORIDE
     Indication: Prophylaxis
     Route: 065

REACTIONS (8)
  - Renal impairment [Recovering/Resolving]
  - Nephrotic syndrome [Recovering/Resolving]
  - Cerebrovascular accident [Recovering/Resolving]
  - Ophthalmic herpes simplex [Recovering/Resolving]
  - Pneumonia influenzal [Recovering/Resolving]
  - Seizure [Recovering/Resolving]
  - Oedema peripheral [Recovering/Resolving]
  - Oral herpes [Recovering/Resolving]
